FAERS Safety Report 14630143 (Version 4)
Quarter: 2019Q1

REPORT INFORMATION
  Report Type: Spontaneous
  Country: US (occurrence: US)
  Receive Date: 20180313
  Receipt Date: 20190130
  Transmission Date: 20190417
  Serious: Yes (Other)
  Sender: FDA-Public Use
  Company Number: US-PFIZER INC-2018099078

PATIENT
  Age: 65 Year
  Sex: Male

DRUGS (1)
  1. XELJANZ [Suspect]
     Active Substance: TOFACITINIB CITRATE
     Indication: COLITIS ULCERATIVE
     Dosage: 5 MG, 2X/DAY (X60)
     Route: 048
     Dates: start: 20180120

REACTIONS (8)
  - Insomnia [Unknown]
  - Hepatic steatosis [Unknown]
  - Intestinal haemorrhage [Recovering/Resolving]
  - Fatigue [Unknown]
  - Somnolence [Unknown]
  - Pain [Unknown]
  - Blood glucose increased [Unknown]
  - Blood triglycerides increased [Unknown]

NARRATIVE: CASE EVENT DATE: 20180307
